FAERS Safety Report 9841361 (Version 1)
Quarter: 2013Q4

REPORT INFORMATION
  Report Type: Spontaneous
  Country: US (occurrence: None)
  Receive Date: 20131219
  Receipt Date: 20131219
  Transmission Date: 20140711
  Serious: Yes (Hospitalization, Other)
  Sender: FDA-Public Use
  Company Number: 163-20785-12103035

PATIENT
  Age: 60 None
  Sex: Male

DRUGS (3)
  1. THALOMID [Suspect]
     Indication: PROSTATE CANCER
     Dosage: 50 MG, 1 IN 1 D, PO
     Route: 048
     Dates: start: 20120525, end: 2012
  2. ECOTRIN (ACETYLSALICYLIC ACID) [Concomitant]
  3. LEUKINE (SARGRAMOSTIM) [Concomitant]

REACTIONS (2)
  - Pneumonia [None]
  - Pseudomonas infection [None]
